FAERS Safety Report 20648674 (Version 1)
Quarter: 2022Q1

REPORT INFORMATION
  Report Type: Spontaneous
  Country: US (occurrence: US)
  Receive Date: 20220329
  Receipt Date: 20220329
  Transmission Date: 20220423
  Serious: No
  Sender: FDA-Public Use
  Company Number: US-BRISTOL-MYERS SQUIBB COMPANY-2022-010881

PATIENT
  Age: 78 Year
  Sex: Male

DRUGS (1)
  1. REVLIMID [Suspect]
     Active Substance: LENALIDOMIDE
     Indication: Plasma cell myeloma
     Dosage: FREQUENCY;QD1-QD14
     Route: 048
     Dates: start: 20220214

REACTIONS (5)
  - Oral pain [Unknown]
  - Feeling abnormal [Unknown]
  - Mouth injury [Unknown]
  - Fatigue [Unknown]
  - Asthenia [Unknown]
